FAERS Safety Report 17250309 (Version 1)
Quarter: 2020Q1

REPORT INFORMATION
  Report Type: Spontaneous
  Country: US (occurrence: US)
  Receive Date: 20200109
  Receipt Date: 20200109
  Transmission Date: 20200409
  Serious: No
  Sender: FDA-Public Use
  Company Number: US-ALLERGAN-1947328US

PATIENT
  Sex: Female

DRUGS (2)
  1. ACZONE [Suspect]
     Active Substance: DAPSONE
     Indication: PRODUCT USED FOR UNKNOWN INDICATION
     Dosage: 7.5 %
     Route: 061
  2. ACZONE [Suspect]
     Active Substance: DAPSONE
     Dosage: 5 %
     Route: 061

REACTIONS (2)
  - Lip discolouration [Unknown]
  - Nail discolouration [Unknown]
